FAERS Safety Report 16695863 (Version 1)
Quarter: 2019Q3

REPORT INFORMATION
  Report Type: Spontaneous
  Country: LU (occurrence: LU)
  Receive Date: 20190813
  Receipt Date: 20190813
  Transmission Date: 20191004
  Serious: Yes (Other)
  Sender: FDA-Public Use
  Company Number: LU-009507513-1908LUX002115

PATIENT
  Age: 55 Year
  Sex: Male
  Weight: 85 kg

DRUGS (16)
  1. ACTOS [Concomitant]
     Active Substance: PIOGLITAZONE HYDROCHLORIDE
     Dosage: UNK
  2. NEXIAM [Concomitant]
     Active Substance: ESOMEPRAZOLE
     Dosage: UNK
  3. MIRTAZAPINE. [Suspect]
     Active Substance: MIRTAZAPINE
     Indication: PROGRESSIVE MULTIFOCAL LEUKOENCEPHALOPATHY
     Dosage: UNK
     Route: 048
     Dates: start: 20181005
  4. PROBENECID. [Suspect]
     Active Substance: PROBENECID
     Indication: PROGRESSIVE MULTIFOCAL LEUKOENCEPHALOPATHY
     Dosage: UNK
     Route: 048
     Dates: start: 20181005
  5. MABTHERA [Concomitant]
     Active Substance: RITUXIMAB
     Dosage: 637 MG, CYCLICAL, DAY 1 OF EACH CURE
     Dates: start: 20171103, end: 20180319
  6. EUTHYROX [Concomitant]
     Active Substance: LEVOTHYROXINE SODIUM
     Dosage: UNK
  7. PROLEUKIN [Suspect]
     Active Substance: ALDESLEUKIN
     Indication: PROGRESSIVE MULTIFOCAL LEUKOENCEPHALOPATHY
     Dosage: UNK
     Route: 058
     Dates: start: 201812, end: 201904
  8. MEFLOQUINE [Suspect]
     Active Substance: MEFLOQUINE
     Indication: PROGRESSIVE MULTIFOCAL LEUKOENCEPHALOPATHY
     Dosage: UNK
     Route: 048
     Dates: start: 201810
  9. LINAGLIPTIN [Concomitant]
     Active Substance: LINAGLIPTIN
     Dosage: UNK
  10. GLUCOPHAGE [Concomitant]
     Active Substance: METFORMIN HYDROCHLORIDE
     Dosage: UNK
  11. FLUDARA [Concomitant]
     Active Substance: FLUDARABINE PHOSPHATE
     Dosage: 42.5 MG, CYCLICAL, DAY 1, DAY 2 AND DAY 3 OF EACH CURE.
     Dates: start: 20171103, end: 20180321
  12. ATACAND [Concomitant]
     Active Substance: CANDESARTAN CILEXETIL
     Dosage: UNK
  13. LANTUS [Concomitant]
     Active Substance: INSULIN GLARGINE
     Dosage: UNK
  14. ENDOXAN [Concomitant]
     Active Substance: CYCLOPHOSPHAMIDE
     Dosage: 424.3 MG, CYCLICAL, DAY 1, DAY 2 AND DAY 3 OF EACH CURE.
     Dates: start: 20171103, end: 20180321
  15. OCTAGAM IMMUNE GLOBULIN (HUMAN) [Concomitant]
     Active Substance: HUMAN IMMUNOGLOBULIN G
     Dosage: UNK
  16. VISTIDE [Suspect]
     Active Substance: CIDOFOVIR
     Indication: PROGRESSIVE MULTIFOCAL LEUKOENCEPHALOPATHY
     Dosage: STRENGTH: 75 MG/ML, UNK
     Route: 042
     Dates: start: 20181005

REACTIONS (1)
  - Desmoid tumour [Not Recovered/Not Resolved]

NARRATIVE: CASE EVENT DATE: 201903
